FAERS Safety Report 7712930-3 (Version None)
Quarter: 2011Q3

REPORT INFORMATION
  Report Type: 
  Country: None (occurrence: None)
  Receive Date: 20110826
  Receipt Date: 20110818
  Transmission Date: 20111222
  Serious: Yes (Disabling, Other)
  Sender: FDA-Public Use
  Company Number: PHHY2011FR30546

PATIENT
  Sex: Female

DRUGS (4)
  1. THYMOGLOBULIN [Concomitant]
     Dosage: UNK
     Dates: start: 20100109, end: 20100117
  2. PREDNISONE [Concomitant]
     Dosage: 15 MG, UNK
  3. CELLCEPT [Concomitant]
     Dosage: 1 G, BID
  4. NEORAL [Suspect]
     Indication: LIVER TRANSPLANT
     Dosage: 50 MG, BID
     Dates: start: 19930101

REACTIONS (5)
  - RENAL IMPAIRMENT [None]
  - ANURIA [None]
  - RENAL FAILURE CHRONIC [None]
  - BLOOD CREATININE INCREASED [None]
  - NEPHROPATHY TOXIC [None]
